FAERS Safety Report 5145900-2 (Version None)
Quarter: 2006Q4

REPORT INFORMATION
  Report Type: 
  Country: None (occurrence: None)
  Receive Date: 20061106
  Receipt Date: 20061106
  Transmission Date: 20070319
  Serious: Yes (Other)
  Sender: FDA-Public Use
  Company Number: None

PATIENT
  Sex: Male

DRUGS (1)
  1. DOPAMINE HCL IN 5% DEXTROSE [Suspect]
     Indication: HYPOTENSION
     Dosage: 2 MCG TO 6 MCG OVER 18 MINS IV DRIP
     Route: 041
     Dates: start: 20060415, end: 20060415

REACTIONS (3)
  - BLOOD GLUCOSE DECREASED [None]
  - PHARMACEUTICAL PRODUCT COMPLAINT [None]
  - WRONG DRUG ADMINISTERED [None]
